FAERS Safety Report 5377301-6 (Version None)
Quarter: 2007Q3

REPORT INFORMATION
  Report Type: 
  Country: None (occurrence: None)
  Receive Date: 20070703
  Receipt Date: 20070622
  Transmission Date: 20080115
  Serious: Yes (Hospitalization, Other)
  Sender: FDA-Public Use
  Company Number: US-ROCHE-443845

PATIENT
  Age: 56 Year
  Sex: Female

DRUGS (13)
  1. PEGASYS [Suspect]
     Dosage: ROUTE REPORTED AS ^INJ^.
     Route: 050
     Dates: start: 20060303, end: 20060407
  2. PEGASYS [Suspect]
     Dosage: ROUTE REPORTED AS ^INJ^.
     Route: 050
     Dates: start: 20060407, end: 20060414
  3. PEGASYS [Suspect]
     Route: 050
     Dates: start: 20060526, end: 20060609
  4. PEGASYS [Suspect]
     Dosage: ROUTE REPORTED AS 'INJ'. STRENGTH REPORTED AS 180MCG/0.5CC.
     Route: 050
     Dates: start: 20060623, end: 20070619
  5. COPEGUS [Suspect]
     Dosage: DOSAGE REGIMEN REPORTED AS 3 IN AM, 2 IN PM.
     Route: 048
     Dates: start: 20060303, end: 20060403
  6. COPEGUS [Suspect]
     Dosage: 2 IN AN, 2 IN PM.
     Route: 048
     Dates: start: 20060403, end: 20060414
  7. COPEGUS [Suspect]
     Route: 048
     Dates: start: 20060526, end: 20060614
  8. COPEGUS [Suspect]
     Route: 048
     Dates: start: 20060623, end: 20070619
  9. EFFEXOR [Concomitant]
     Indication: ANTIDEPRESSANT THERAPY
  10. CELEXA [Concomitant]
     Indication: ANTIDEPRESSANT THERAPY
  11. ALEVE [Concomitant]
     Route: 048
  12. BONIVA [Concomitant]
     Indication: PROPHYLAXIS
     Dosage: FORMULATION REPORTED AS 'ONE TAB'.
     Route: 048
  13. FLU VACCINE [Concomitant]
     Indication: PROPHYLAXIS
     Route: 030

REACTIONS (12)
  - AGITATION [None]
  - ALOPECIA [None]
  - DEPRESSION [None]
  - FATIGUE [None]
  - HYPOTHYROIDISM [None]
  - MOOD SWINGS [None]
  - NEUTROPENIA [None]
  - SKIN LESION [None]
  - URINARY TRACT INFECTION [None]
  - VERTIGO POSITIONAL [None]
  - WEIGHT DECREASED [None]
  - WHITE BLOOD CELL COUNT DECREASED [None]
